FAERS Safety Report 6497053-6 (Version None)
Quarter: 2009Q4

REPORT INFORMATION
  Report Type: 
  Country: None (occurrence: None)
  Receive Date: 20091215
  Receipt Date: 20090205
  Transmission Date: 20100525
  Serious: No
  Sender: FDA-Public Use
  Company Number: A0768033A

PATIENT
  Sex: Male

DRUGS (2)
  1. AVODART [Suspect]
     Indication: DRUG USE FOR UNKNOWN INDICATION
     Route: 048
     Dates: start: 20070101
  2. FLOMAX [Suspect]
     Indication: DRUG USE FOR UNKNOWN INDICATION
     Route: 048
     Dates: start: 20070101

REACTIONS (3)
  - BREAST TENDERNESS [None]
  - DISCOMFORT [None]
  - NIPPLE PAIN [None]
